FAERS Safety Report 5702075-6 (Version None)
Quarter: 2008Q2

REPORT INFORMATION
  Report Type: 
  Country: None (occurrence: None)
  Receive Date: 20080411
  Receipt Date: 20070817
  Transmission Date: 20081010
  Serious: No
  Sender: FDA-Public Use
  Company Number: US-ABBOTT-07P-163-0378480-00

PATIENT

DRUGS (1)
  1. DEPAKOTE [Suspect]
     Indication: DRUG USE FOR UNKNOWN INDICATION

REACTIONS (4)
  - ABNORMAL FAECES [None]
  - DIARRHOEA [None]
  - FAECES DISCOLOURED [None]
  - HYPERSENSITIVITY [None]
